FAERS Safety Report 5153763-4 (Version None)
Quarter: 2006Q4

REPORT INFORMATION
  Report Type: 
  Country: None (occurrence: None)
  Receive Date: 20061120
  Receipt Date: 20061114
  Transmission Date: 20070319
  Serious: Yes (Other)
  Sender: FDA-Public Use
  Company Number: US-JNJFOC-20061103546

PATIENT
  Sex: Female
  Weight: 82.56 kg

DRUGS (18)
  1. REMICADE [Suspect]
     Indication: ANKYLOSING SPONDYLITIS
     Route: 042
  2. REMICADE [Suspect]
     Indication: CROHN'S DISEASE
     Route: 042
  3. METHOTREXATE [Concomitant]
  4. ALLOPURINOL [Concomitant]
  5. GLYBURIDE [Concomitant]
  6. INSULIN [Concomitant]
  7. HYDROCHLOROTHIAZIDE [Concomitant]
  8. SYNTHROID [Concomitant]
  9. LISINOPRIL [Concomitant]
  10. METFORMIN [Concomitant]
  11. NIFEDIPINE [Concomitant]
  12. PRILOSEC [Concomitant]
  13. QUININE SULFATE [Concomitant]
  14. AVANDIA [Concomitant]
  15. ROSUVASTATIN [Concomitant]
  16. ELAVIL [Concomitant]
  17. SYRTIALINE [Concomitant]
  18. BACLOFEN [Concomitant]

REACTIONS (1)
  - BLADDER CANCER [None]
